FAERS Safety Report 9814736 (Version 1)
Quarter: 2014Q1

REPORT INFORMATION
  Report Type: Spontaneous
  Country: US (occurrence: US)
  Receive Date: 20140113
  Receipt Date: 20140113
  Transmission Date: 20141002
  Serious: No
  Sender: FDA-Public Use
  Company Number: US-SANOFI-AVENTIS-2013SA048167

PATIENT
  Sex: 0

DRUGS (2)
  1. TAXOTERE [Suspect]
     Route: 065
  2. PREDNISONE [Suspect]
     Route: 065

REACTIONS (2)
  - Diabetes mellitus [Unknown]
  - Asthenia [Unknown]
